FAERS Safety Report 7971625-1 (Version None)
Quarter: 2011Q4

REPORT INFORMATION
  Report Type: 
  Country: None (occurrence: None)
  Receive Date: 20111212
  Receipt Date: 20111205
  Transmission Date: 20120403
  Serious: Yes (Other)
  Sender: FDA-Public Use
  Company Number: US-ASTRAZENECA-2011SE71234

PATIENT
  Age: 60 Year
  Sex: Female
  Weight: 93.4 kg

DRUGS (7)
  1. CYMBALTA [Concomitant]
  2. TRAMADOL HCL [Concomitant]
  3. SEROQUEL XR [Suspect]
     Indication: BIPOLAR DISORDER
     Route: 048
  4. SEROQUEL XR [Suspect]
     Route: 048
  5. METFORMIN HCL [Concomitant]
  6. THYROID MEDICATION [Concomitant]
  7. SEROQUEL XR [Suspect]
     Route: 048

REACTIONS (7)
  - MALAISE [None]
  - BACK INJURY [None]
  - DRUG DOSE OMISSION [None]
  - UPPER LIMB FRACTURE [None]
  - FALL [None]
  - GAIT DISTURBANCE [None]
  - JOINT SWELLING [None]
